FAERS Safety Report 7691964-1 (Version None)
Quarter: 2011Q3

REPORT INFORMATION
  Report Type: 
  Country: None (occurrence: None)
  Receive Date: 20110815
  Receipt Date: 20101125
  Transmission Date: 20111222
  Serious: Yes (Other)
  Sender: FDA-Public Use
  Company Number: DSM-2010-00155

PATIENT
  Age: 42 Year
  Sex: Female

DRUGS (2)
  1. TRANDATE [Suspect]
     Indication: ESSENTIAL HYPERTENSION
     Dates: start: 20091201
  2. OLMESARTAN MEDOXOMIL [Suspect]
     Indication: ESSENTIAL HYPERTENSION
     Dosage: ORAL
     Route: 048
     Dates: start: 20091016, end: 20091201

REACTIONS (3)
  - ABORTION [None]
  - PREGNANCY [None]
  - MATERNAL EXPOSURE DURING PREGNANCY [None]
